FAERS Safety Report 18271308 (Version 1)
Quarter: 2020Q3

REPORT INFORMATION
  Report Type: Spontaneous
  Country: US (occurrence: US)
  Receive Date: 20200916
  Receipt Date: 20200916
  Transmission Date: 20201103
  Serious: No
  Sender: FDA-Public Use
  Company Number: US-ALLERGAN-1950931US

PATIENT
  Age: 64 Year
  Sex: Female
  Weight: 58.96 kg

DRUGS (2)
  1. VANIQA [Suspect]
     Active Substance: EFLORNITHINE HYDROCHLORIDE
     Indication: HAIR GROWTH ABNORMAL
     Dosage: A FINGERTIP AMOUNT EACH AREA, TWICE A DAY
     Route: 061
     Dates: start: 201907
  2. PROTONIX [Concomitant]
     Active Substance: PANTOPRAZOLE SODIUM
     Indication: GASTROOESOPHAGEAL REFLUX DISEASE
     Dosage: UNK
     Route: 048

REACTIONS (5)
  - Therapy interrupted [Unknown]
  - Product availability issue [Unknown]
  - Product quality issue [Unknown]
  - Hair growth abnormal [Not Recovered/Not Resolved]
  - Drug ineffective [Unknown]

NARRATIVE: CASE EVENT DATE: 201907
